FAERS Safety Report 15664140 (Version 3)
Quarter: 2019Q1

REPORT INFORMATION
  Report Type: Report from Study
  Country: CO (occurrence: CO)
  Receive Date: 20181128
  Receipt Date: 20190322
  Transmission Date: 20190417
  Serious: Yes (Death, Hospitalization)
  Sender: FDA-Public Use
  Company Number: CO-ASTELLAS-2018US042453

PATIENT
  Age: 78 Year
  Sex: Male

DRUGS (2)
  1. TACROLIMUS. [Suspect]
     Active Substance: TACROLIMUS
     Route: 048
     Dates: start: 20180119, end: 20190301
  2. TACROLIMUS. [Suspect]
     Active Substance: TACROLIMUS
     Indication: RENAL TRANSPLANT
     Route: 048
     Dates: start: 20170715

REACTIONS (8)
  - Depression [Fatal]
  - Blood albumin increased [Unknown]
  - Folliculitis [Unknown]
  - Fall [Unknown]
  - Arthritis infective [Unknown]
  - Ill-defined disorder [Unknown]
  - Renal graft infection [Unknown]
  - Decreased appetite [Unknown]

NARRATIVE: CASE EVENT DATE: 201708
